FAERS Safety Report 13604057 (Version 1)
Quarter: 2017Q2

REPORT INFORMATION
  Report Type: Spontaneous
  Country: US (occurrence: US)
  Receive Date: 20170601
  Receipt Date: 20170601
  Transmission Date: 20170830
  Serious: Yes (Hospitalization, Other)
  Sender: FDA-Public Use
  Company Number: None

PATIENT
  Age: 78 Year
  Sex: Female
  Weight: 60.3 kg

DRUGS (4)
  1. NITROFURANTOIN. [Suspect]
     Active Substance: NITROFURANTOIN
     Indication: URINARY TRACT INFECTION
     Dosage: ?          QUANTITY:1 CAPSULE(S);?
     Route: 048
     Dates: start: 20170421, end: 20170422
  2. COREG [Concomitant]
     Active Substance: CARVEDILOL
  3. ONE-A-DAY NOS [Concomitant]
     Active Substance: MINERALS\VITAMINS
  4. CRANBERRY TABLET [Concomitant]

REACTIONS (8)
  - Dysstasia [None]
  - Pyrexia [None]
  - Chills [None]
  - Heart rate increased [None]
  - Retching [None]
  - Feeling abnormal [None]
  - Pancreatitis [None]
  - Diarrhoea [None]

NARRATIVE: CASE EVENT DATE: 20170422
